FAERS Safety Report 22251549 (Version 1)
Quarter: 2023Q2

REPORT INFORMATION
  Report Type: Spontaneous
  Country: US (occurrence: US)
  Receive Date: 20230425
  Receipt Date: 20230425
  Transmission Date: 20230721
  Serious: Yes (Other)
  Sender: FDA-Public Use
  Company Number: US-PFIZER INC-202300060265

PATIENT
  Age: 68 Year
  Sex: Male
  Weight: 74.84 kg

DRUGS (2)
  1. CAVERJECT IMPULSE [Suspect]
     Active Substance: ALPROSTADIL
     Indication: Erectile dysfunction
     Dosage: 5 UG
     Dates: start: 2022
  2. CAVERJECT IMPULSE [Suspect]
     Active Substance: ALPROSTADIL
     Dosage: 10 UG

REACTIONS (3)
  - Wrong technique in device usage process [Unknown]
  - Erection increased [Unknown]
  - Therapeutic product effect incomplete [Unknown]
